FAERS Safety Report 6212656-1 (Version None)
Quarter: 2009Q2

REPORT INFORMATION
  Report Type: 
  Country: None (occurrence: None)
  Receive Date: 20090529
  Receipt Date: 20090514
  Transmission Date: 20091009
  Serious: Yes (Other)
  Sender: FDA-Public Use
  Company Number: GB-DEXPHARM-20090747

PATIENT
  Age: 1 Day
  Sex: Male

DRUGS (3)
  1. TISEPT ACTIVE SUBSTANCES: CHLORHEXIDINE GLUCONATE; CETTRIMIDE [Suspect]
     Indication: SURGERY
     Route: 061
     Dates: start: 20090320, end: 20090320
  2. AMOXICILLIN [Concomitant]
  3. GENTAMICIN [Concomitant]

REACTIONS (2)
  - APPLICATION SITE BURN [None]
  - BURNS THIRD DEGREE [None]
